FAERS Safety Report 6902562-9 (Version None)
Quarter: 2010Q3

REPORT INFORMATION
  Report Type: 
  Country: None (occurrence: None)
  Receive Date: 20100803
  Receipt Date: 20080531
  Transmission Date: 20110219
  Serious: No
  Sender: FDA-Public Use
  Company Number: US-PFIZER INC-2008022376

PATIENT
  Sex: Female
  Weight: 67.272 kg

DRUGS (8)
  1. LYRICA [Suspect]
     Indication: FIBROMYALGIA
     Route: 048
     Dates: start: 20071206, end: 20080207
  2. LYRICA [Suspect]
     Indication: PAIN
  3. LYRICA [Suspect]
     Indication: CARPAL TUNNEL SYNDROME
  4. CELEXA [Concomitant]
     Route: 048
  5. LEVOTHYROXINE [Concomitant]
     Route: 048
  6. LEXAPRO [Concomitant]
     Route: 048
     Dates: start: 20070410, end: 20070417
  7. ZYPREXA [Concomitant]
     Route: 048
     Dates: start: 20070410
  8. DICLOFENAC [Concomitant]
     Dates: start: 20070816

REACTIONS (9)
  - BLOOD ALBUMIN INCREASED [None]
  - BLOOD CALCIUM INCREASED [None]
  - BLOOD CHOLESTEROL INCREASED [None]
  - EPIDERMAL GROWTH FACTOR RECEPTOR DECREASED [None]
  - HAEMATOCRIT INCREASED [None]
  - HAEMOGLOBIN INCREASED [None]
  - RED BLOOD CELL COUNT INCREASED [None]
  - SKIN LESION [None]
  - WEIGHT DECREASED [None]
